FAERS Safety Report 25545130 (Version 2)
Quarter: 2025Q3

REPORT INFORMATION
  Report Type: Report from Study
  Country: CA (occurrence: CA)
  Receive Date: 20250711
  Receipt Date: 20250801
  Transmission Date: 20251020
  Serious: Yes (Other)
  Sender: TEVA
  Company Number: CA-TEVA-VS-3339016

PATIENT
  Age: 49 Year
  Sex: Female

DRUGS (5)
  1. AJOVY [Suspect]
     Active Substance: FREMANEZUMAB-VFRM
     Indication: Migraine prophylaxis
     Dosage: LAST DOSE ADMINISTERED DATE: UNKNOWN
     Route: 058
     Dates: start: 20250620, end: 2025
  2. GABAPENTIN [Concomitant]
     Active Substance: GABAPENTIN
     Indication: Product used for unknown indication
  3. TOPIRAMATE [Concomitant]
     Active Substance: TOPIRAMATE
     Indication: Product used for unknown indication
  4. NORTRIPTYLINE [Concomitant]
     Active Substance: NORTRIPTYLINE
     Indication: Product used for unknown indication
  5. VALPROIC ACID [Concomitant]
     Active Substance: VALPROIC ACID
     Indication: Product used for unknown indication

REACTIONS (16)
  - Depression [Unknown]
  - Anxiety [Unknown]
  - Head discomfort [Unknown]
  - Injection site swelling [Recovering/Resolving]
  - Depressed mood [Unknown]
  - Fatigue [Unknown]
  - Wrong technique in device usage process [Unknown]
  - Bradyphrenia [Unknown]
  - Injection site erythema [Recovering/Resolving]
  - Product storage error [Unknown]
  - Incorrect dose administered [Unknown]
  - Injection site pain [Unknown]
  - Injection site rash [Unknown]
  - Feeling abnormal [Unknown]
  - Emotional poverty [Unknown]
  - Brain fog [Unknown]

NARRATIVE: CASE EVENT DATE: 20250101
